FAERS Safety Report 8291186-X (Version None)
Quarter: 2012Q2

REPORT INFORMATION
  Report Type: 
  Country: None (occurrence: None)
  Receive Date: 20120417
  Receipt Date: 20120409
  Transmission Date: 20120825
  Serious: Yes (Hospitalization)
  Sender: FDA-Public Use
  Company Number: US-B.I. PHARMACEUTICALS,INC./RIDGEFIELD-2012-BP-07181BP

PATIENT

DRUGS (1)
  1. PRADAXA [Suspect]
     Route: 048
     Dates: end: 20120101

REACTIONS (1)
  - GASTROINTESTINAL HAEMORRHAGE [None]
